FAERS Safety Report 24902050 (Version 2)
Quarter: 2025Q1

REPORT INFORMATION
  Report Type: Spontaneous
  Country: IT (occurrence: IT)
  Receive Date: 20250129
  Receipt Date: 20250211
  Transmission Date: 20250409
  Serious: Yes (Hospitalization, Other)
  Sender: ABBVIE
  Company Number: IT-TAKEDA-2025TUS007067

PATIENT
  Sex: Male

DRUGS (1)
  1. ENANTONE LP [Suspect]
     Active Substance: LEUPROLIDE ACETATE
     Indication: Product used for unknown indication
     Dosage: Q3MONTHS,  11.25MG
     Route: 058

REACTIONS (2)
  - Pulmonary oedema [Unknown]
  - Cardiac failure [Unknown]
